FAERS Safety Report 4265763-7 (Version None)
Quarter: 2004Q1

REPORT INFORMATION
  Report Type: 
  Country: None (occurrence: None)
  Receive Date: 20040107
  Receipt Date: 20040107
  Transmission Date: 20041129
  Serious: Yes (Other)
  Sender: FDA-Public Use
  Company Number: None

PATIENT
  Sex: Female
  Weight: 101.6057 kg

DRUGS (1)
  1. EFFEXOR [Suspect]
     Indication: DEPRESSION
     Dosage: LESS THAN 5M Q.D. ORAL
     Route: 048
     Dates: start: 20020115, end: 20031223

REACTIONS (6)
  - AFFECT LABILITY [None]
  - ATAXIA [None]
  - DIZZINESS [None]
  - FATIGUE [None]
  - MEDICATION ERROR [None]
  - NAUSEA [None]
